FAERS Safety Report 4822932-2 (Version None)
Quarter: 2005Q4

REPORT INFORMATION
  Report Type: 
  Country: None (occurrence: None)
  Receive Date: 20051104
  Receipt Date: 20051026
  Transmission Date: 20060501
  Serious: Yes (Hospitalization)
  Sender: FDA-Public Use
  Company Number: 2005147637

PATIENT
  Age: 78 Year
  Sex: Female
  Weight: 64 kg

DRUGS (2)
  1. SPIRONOLACTONE [Suspect]
     Indication: HYPERTENSION
     Dosage: ORAL
     Route: 048
     Dates: start: 19940301
  2. ASPIRIN [Concomitant]

REACTIONS (15)
  - ABDOMINAL PAIN LOWER [None]
  - ABDOMINAL PAIN UPPER [None]
  - ABDOMINAL REBOUND TENDERNESS [None]
  - DEHYDRATION [None]
  - DIARRHOEA [None]
  - FLATULENCE [None]
  - HAEMOCONCENTRATION [None]
  - INGUINAL HERNIA [None]
  - INTESTINAL ISCHAEMIA [None]
  - MESENTERIC ARTERY THROMBOSIS [None]
  - METABOLIC ACIDOSIS [None]
  - OCCULT BLOOD POSITIVE [None]
  - SYSTEMIC INFLAMMATORY RESPONSE SYNDROME [None]
  - VEIN DISORDER [None]
  - VOMITING [None]
